FAERS Safety Report 5851064-X (Version None)
Quarter: 2008Q3

REPORT INFORMATION
  Report Type: 
  Country: None (occurrence: None)
  Receive Date: 20080820
  Receipt Date: 20080814
  Transmission Date: 20090109
  Serious: Yes (Other)
  Sender: FDA-Public Use
  Company Number: BR-ABBOTT-08P-020-0471003-00

PATIENT
  Age: 57 Year
  Sex: Female
  Weight: 75 kg

DRUGS (1)
  1. REDUCTIL 15MG [Suspect]
     Indication: WEIGHT CONTROL
     Route: 048
     Dates: start: 20030101

REACTIONS (3)
  - INTERVERTEBRAL DISC PROTRUSION [None]
  - MIGRAINE [None]
  - OEDEMA PERIPHERAL [None]
